FAERS Safety Report 10337293 (Version 1)
Quarter: 2014Q3

REPORT INFORMATION
  Report Type: Spontaneous
  Country: JP (occurrence: JP)
  Receive Date: 20140723
  Receipt Date: 20140723
  Transmission Date: 20150326
  Serious: Yes (Hospitalization)
  Sender: FDA-Public Use
  Company Number: PHHY2014JP089459

PATIENT
  Age: 57 Year
  Sex: Male

DRUGS (2)
  1. PREDNISOLONE. [Suspect]
     Active Substance: PREDNISOLONE
  2. URSODEOXYCHOLIC ACID [Suspect]
     Active Substance: URSODIOL

REACTIONS (1)
  - Cholestasis [Recovered/Resolved]
